FAERS Safety Report 17017406 (Version 1)
Quarter: 2019Q4

REPORT INFORMATION
  Report Type: Report from Study
  Country: US (occurrence: US)
  Receive Date: 20191111
  Receipt Date: 20191111
  Transmission Date: 20200122
  Serious: Yes (Life-Threatening, Hospitalization, Other)
  Sender: FDA-Public Use
  Company Number: US-PFIZER INC-2019485425

PATIENT
  Age: 39 Year
  Sex: Female
  Weight: 117.6 kg

DRUGS (3)
  1. FENTANYL CITRATE. [Suspect]
     Active Substance: FENTANYL CITRATE
     Indication: PAIN
     Dosage: ADMINISTERED THROUGH A PAIN PUMP
     Route: 037
  2. PALBOCICLIB [Suspect]
     Active Substance: PALBOCICLIB
  3. FULVESTRANT. [Suspect]
     Active Substance: FULVESTRANT

REACTIONS (2)
  - Accidental overdose [Unknown]
  - Toxicity to various agents [Unknown]

NARRATIVE: CASE EVENT DATE: 20191106
